FAERS Safety Report 9230275 (Version 3)
Quarter: 2013Q3

REPORT INFORMATION
  Report Type: Report from Study
  Country: BR (occurrence: BR)
  Receive Date: 20130415
  Receipt Date: 20130802
  Transmission Date: 20140515
  Serious: Yes (Other)
  Sender: FDA-Public Use
  Company Number: PHHY2013BR035638

PATIENT
  Sex: Female
  Weight: 85 kg

DRUGS (8)
  1. DIOVAN HCT [Suspect]
     Indication: HYPERTENSION
     Dosage: 1 DF (160 MG VALS AND 12.5 MG HCTZ), A DAY
     Route: 048
     Dates: start: 2010
  2. DIOVAN HCT [Suspect]
     Dosage: 1 DF, (160 MG VALS AND 12.5 MG HCTZ) DAILY
     Route: 048
     Dates: start: 20130409
  3. INDERAL [Concomitant]
     Indication: ARRHYTHMIA
     Dosage: 1 DF (10 MG), IF SHE PRESENTED WITH ARRHYTHMIA SHE WOULD USE 1 MORE TABLET A DAY
     Route: 048
     Dates: start: 1997
  4. GLUCOSAMINE [Concomitant]
     Indication: CHONDROPLASTY
     Dosage: 1 DF, A DAY
     Route: 048
  5. GLUCOSAMINE [Concomitant]
     Indication: INADEQUATE LUBRICATION
  6. CHONDROITIN [Concomitant]
     Indication: CHONDROPLASTY
     Dosage: 1 DF, A DAY
     Route: 048
  7. CHONDROITIN [Concomitant]
     Indication: INADEQUATE LUBRICATION
  8. OMEGA 3 [Concomitant]
     Indication: BLOOD CHOLESTEROL INCREASED
     Dosage: 1 DF, A DAY
     Route: 048

REACTIONS (10)
  - Arthropathy [Recovered/Resolved]
  - Gait disturbance [Not Recovered/Not Resolved]
  - Injury [Unknown]
  - Primary sequestrum [Unknown]
  - Fall [Recovered/Resolved]
  - Blood pressure increased [Recovered/Resolved]
  - Gastrooesophageal reflux disease [Recovered/Resolved]
  - Gastritis [Recovered/Resolved]
  - Dyspepsia [Recovered/Resolved]
  - Headache [Recovered/Resolved]
